FAERS Safety Report 21105900 (Version 3)
Quarter: 2023Q1

REPORT INFORMATION
  Report Type: Other
  Country: DE (occurrence: None)
  Receive Date: 20220720
  Receipt Date: 20230323
  Transmission Date: 20230418
  Serious: No
  Sender: FDA-Public Use
  Company Number: DE-ROCHE-3071155

PATIENT
  Age: 56 Year
  Sex: Male

DRUGS (1)
  1. OCREVUS [Suspect]
     Active Substance: OCRELIZUMAB
     Indication: Relapsing-remitting multiple sclerosis
     Dosage: SECOND MAINTENANCE DOSE WAS RECEIVED ON 16/MAR/2023
     Route: 042
     Dates: start: 20220330

REACTIONS (5)
  - Fatigue [Recovered/Resolved]
  - Neck pain [Recovered/Resolved]
  - COVID-19 [Recovered/Resolved]
  - Pain in extremity [Recovered/Resolved]
  - Paraesthesia [Not Recovered/Not Resolved]

NARRATIVE: CASE EVENT DATE: 20220330
